FAERS Safety Report 19921911 (Version 1)
Quarter: 2021Q4

REPORT INFORMATION
  Report Type: Spontaneous
  Country: DK (occurrence: DK)
  Receive Date: 20211006
  Receipt Date: 20211006
  Transmission Date: 20220303
  Serious: Yes (Death, Hospitalization)
  Sender: FDA-Public Use
  Company Number: None

PATIENT
  Age: 71 Year
  Sex: Male
  Weight: 66 kg

DRUGS (2)
  1. IMBRUVICA [Suspect]
     Active Substance: IBRUTINIB
     Indication: Mantle cell lymphoma
     Dosage: STRENGTH: 140 MG
     Route: 048
     Dates: start: 20200817
  2. NOXAFIL [Concomitant]
     Active Substance: POSACONAZOLE
     Indication: Disseminated aspergillosis
     Dates: start: 20201001

REACTIONS (5)
  - Cardiac arrest [Fatal]
  - Haemoptysis [Unknown]
  - Dyspnoea [Unknown]
  - Cough [Unknown]
  - Pleural effusion [Unknown]

NARRATIVE: CASE EVENT DATE: 20210801
